FAERS Safety Report 22385422 (Version 1)
Quarter: 2023Q2

REPORT INFORMATION
  Report Type: Spontaneous
  Country: DE (occurrence: DE)
  Receive Date: 20230530
  Receipt Date: 20230530
  Transmission Date: 20230722
  Serious: Yes (Other)
  Sender: FDA-Public Use
  Company Number: DE-002147023-NVSC2023DE121761

PATIENT
  Sex: Female
  Weight: 67 kg

DRUGS (12)
  1. KESIMPTA [Suspect]
     Active Substance: OFATUMUMAB
     Indication: Multiple sclerosis
     Dosage: 20 MG, QMO (ONE YEAR AGO)
     Route: 065
     Dates: start: 2022
  2. PANTOZOL [Concomitant]
     Active Substance: PANTOPRAZOLE SODIUM
     Indication: Product used for unknown indication
     Dosage: UNK, QD (1-0-0-0) (ENTERIC COATED TABLET)
     Route: 065
  3. FERROUS GLYCINE SULFATE [Concomitant]
     Active Substance: FERROUS GLYCINE SULFATE
     Indication: Product used for unknown indication
     Dosage: 1 DOSAGE FORM, QD (0-0-1-0)
     Route: 065
  4. VIMPAT [Concomitant]
     Active Substance: LACOSAMIDE
     Indication: Product used for unknown indication
     Dosage: UNK, BID (1-0-1-0)
     Route: 065
  5. SYMBICORT [Concomitant]
     Active Substance: BUDESONIDE\FORMOTEROL FUMARATE DIHYDRATE
     Indication: Product used for unknown indication
     Dosage: UNK, TURBOHALER 160/4,5 MIKROGRAMM/DOSIS PULVER ZUR INHALATION (FORMULATION: POWDER FOR INHALATION)
     Route: 065
  6. GLYCOPYRROLATE [Concomitant]
     Active Substance: GLYCOPYRROLATE
     Indication: Product used for unknown indication
     Dosage: UNK, QD (FORMULATION: HARD CAPSULES FOR INHALATION), 44 MIKROGRAMM, HARTKAPSELN
     Route: 065
  7. RUPAFIN [Concomitant]
     Active Substance: RUPATADINE FUMARATE
     Indication: Product used for unknown indication
     Dosage: UNK, QD (0-0-1-0)
     Route: 065
  8. SALBUHEXAL [Concomitant]
     Active Substance: ALBUTEROL
     Indication: Product used for unknown indication
     Dosage: UNK (FORMULATION: SPRAY, METERED DOSE AEROSOL)
     Route: 065
  9. NOVALGIN [Concomitant]
     Indication: Product used for unknown indication
     Dosage: UNK
     Route: 065
  10. BEVESPI AEROSPHERE [Concomitant]
     Active Substance: FORMOTEROL FUMARATE\GLYCOPYRROLATE
     Indication: Product used for unknown indication
     Dosage: 2 DOSAGE FORM (2 PUFFS), QD (FORMULATION: PRESSURIZED INHALATION, SPRAY) (1-0-1-0)
     Route: 065
  11. PANTOPRAZOLE SODIUM [Concomitant]
     Active Substance: PANTOPRAZOLE SODIUM
     Indication: Product used for unknown indication
     Dosage: 1 DOSAGE FORM, QD (40 MG (1-0-0-0)), ENTERIC-COATED TABLETS
     Route: 065
  12. BRIVIACT [Concomitant]
     Active Substance: BRIVARACETAM
     Indication: Product used for unknown indication
     Dosage: 2 DOSAGE FORM (50 MG), BID (1-0-1-0)
     Route: 065

REACTIONS (2)
  - Epilepsy [Unknown]
  - Paraesthesia [Not Recovered/Not Resolved]
